FAERS Safety Report 20817119 (Version 1)
Quarter: 2022Q2

REPORT INFORMATION
  Report Type: Spontaneous
  Country: US (occurrence: US)
  Receive Date: 20220512
  Receipt Date: 20220512
  Transmission Date: 20220720
  Serious: Yes (Life-Threatening, Hospitalization, Other)
  Sender: FDA-Public Use
  Company Number: US-AMGEN-USASP2022076335

PATIENT

DRUGS (1)
  1. PEGFILGRASTIM [Suspect]
     Active Substance: PEGFILGRASTIM
     Indication: Prophylaxis
     Route: 065

REACTIONS (26)
  - Neutropenia [Unknown]
  - Febrile neutropenia [Unknown]
  - Sepsis [Unknown]
  - Pneumonia [Unknown]
  - Gastrointestinal haemorrhage [Unknown]
  - Pneumothorax [Unknown]
  - Clostridium difficile infection [Unknown]
  - Acute myocardial infarction [Unknown]
  - Acute kidney injury [Unknown]
  - Cellulitis [Unknown]
  - Pneumonitis [Unknown]
  - Pleural effusion [Unknown]
  - Unevaluable event [Unknown]
  - Mental status changes [Unknown]
  - Vomiting [Unknown]
  - Chest pain [Unknown]
  - Nausea [Unknown]
  - Vascular device infection [Unknown]
  - Neuropathy peripheral [Unknown]
  - Renal impairment [Unknown]
  - Thrombocytopenia [Unknown]
  - Device breakage [Unknown]
  - Pain [Unknown]
  - Fatigue [Unknown]
  - Anaemia [Unknown]
  - Off label use [Unknown]
